FAERS Safety Report 7344394 (Version 4)
Quarter: 2014Q1

REPORT INFORMATION
  Report Type: Spontaneous
  Country: US (occurrence: US)
  Receive Date: 20100405
  Receipt Date: 20140129
  Transmission Date: 20141002
  Serious: No
  Sender: FDA-Public Use
  Company Number: US-JNJFOC-20100306813

PATIENT
  Sex: Female
  Weight: 65.77 kg

DRUGS (8)
  1. UNSPECIFIED FENTANYL TRANSDERMAL SYSTEM [Suspect]
     Indication: BACK PAIN
     Route: 062
     Dates: start: 2004, end: 201002
  2. SANDOZ FENTANYL TRANSDERMAL SYSTEM [Suspect]
     Indication: BACK PAIN
     Route: 062
     Dates: start: 201002
  3. NEURONTIN [Concomitant]
     Indication: RESTLESS LEGS SYNDROME
     Route: 048
     Dates: start: 2000
  4. COLACE [Concomitant]
     Indication: CONSTIPATION
     Route: 048
     Dates: start: 2000
  5. RELPAX [Concomitant]
     Indication: MIGRAINE
     Route: 048
     Dates: start: 2000
  6. ACYCLOVIR [Concomitant]
     Indication: MENINGITIS VIRAL
     Route: 048
     Dates: start: 1990
  7. PRILOSEC [Concomitant]
     Indication: GASTROOESOPHAGEAL REFLUX DISEASE
     Route: 048
     Dates: start: 2003
  8. SEROQUEL [Concomitant]
     Indication: BIPOLAR DISORDER
     Route: 048
     Dates: start: 2003

REACTIONS (6)
  - Application site urticaria [Not Recovered/Not Resolved]
  - Product quality issue [Unknown]
  - Fall [Recovered/Resolved]
  - Ligament sprain [Not Recovered/Not Resolved]
  - Drug administered at inappropriate site [Not Recovered/Not Resolved]
  - Drug ineffective [Not Recovered/Not Resolved]
